FAERS Safety Report 24524111 (Version 2)
Quarter: 2024Q4

REPORT INFORMATION
  Report Type: Spontaneous
  Country: US (occurrence: US)
  Receive Date: 20241018
  Receipt Date: 20241115
  Transmission Date: 20250115
  Serious: No
  Sender: SANOFI AVENTIS
  Company Number: US-SA-2024SA296949

PATIENT
  Age: 75 Year
  Sex: Female

DRUGS (3)
  1. DUPIXENT [Suspect]
     Active Substance: DUPILUMAB
     Indication: Neurodermatitis
     Dosage: 300 MG, QW
     Route: 058
     Dates: start: 202011
  2. DUPIXENT [Suspect]
     Active Substance: DUPILUMAB
     Indication: Dermatitis atopic
  3. AREXVY [Suspect]
     Active Substance: RECOMBINANT RESPIRATORY SYNCYTIAL VIRUS PRE-FUSION F PROTEIN ANTIGEN
     Route: 065

REACTIONS (7)
  - Cough [Recovered/Resolved]
  - Nasal disorder [Unknown]
  - Rhinorrhoea [Recovered/Resolved]
  - Dermatitis atopic [Not Recovered/Not Resolved]
  - Pruritus [Not Recovered/Not Resolved]
  - Therapeutic product effect incomplete [Not Recovered/Not Resolved]
  - Inappropriate schedule of product administration [Unknown]

NARRATIVE: CASE EVENT DATE: 20201101
